FAERS Safety Report 9923719 (Version 1)
Quarter: 2014Q1

REPORT INFORMATION
  Report Type: Spontaneous
  Country: US (occurrence: US)
  Receive Date: 20140225
  Receipt Date: 20140225
  Transmission Date: 20141002
  Serious: No
  Sender: FDA-Public Use
  Company Number: US-AMGEN-USASP2014000980

PATIENT
  Age: 58 Year
  Sex: Female
  Weight: 90.7 kg

DRUGS (4)
  1. ENBREL [Suspect]
     Indication: ABSCESS ORAL
     Dosage: 50 MG, EVERY 7 DAYS
     Route: 058
  2. ENBREL [Suspect]
     Indication: ABSCESS
  3. ENBREL [Suspect]
     Indication: MOUTH ULCERATION
  4. ENBREL [Suspect]
     Indication: ULCER

REACTIONS (1)
  - Sinusitis [Recovered/Resolved]
